FAERS Safety Report 21281332 (Version 1)
Quarter: 2022Q3

REPORT INFORMATION
  Report Type: Report from Study
  Country: US (occurrence: None)
  Receive Date: 20220901
  Receipt Date: 20220901
  Transmission Date: 20221027
  Serious: Yes (Hospitalization)
  Sender: FDA-Public Use
  Company Number: US-Eisai Medical Research-EC-2022-122176

PATIENT
  Age: 79 Year
  Sex: Female
  Weight: 51.7 kg

DRUGS (27)
  1. LENVIMA [Suspect]
     Active Substance: LENVATINIB
     Indication: Thyroid cancer
     Route: 048
     Dates: start: 20191118
  2. LENVIMA [Suspect]
     Active Substance: LENVATINIB
     Route: 048
     Dates: end: 2020
  3. LENVIMA [Suspect]
     Active Substance: LENVATINIB
     Route: 048
     Dates: start: 2020, end: 2020
  4. LENVIMA [Suspect]
     Active Substance: LENVATINIB
     Route: 048
     Dates: start: 2020, end: 202009
  5. LENVIMA [Suspect]
     Active Substance: LENVATINIB
     Route: 048
     Dates: end: 202105
  6. LENVIMA [Suspect]
     Active Substance: LENVATINIB
     Route: 048
     Dates: start: 2021, end: 20220625
  7. SYNTHROID [Concomitant]
     Active Substance: LEVOTHYROXINE SODIUM
     Dates: end: 20220625
  8. METOPROLOL [Concomitant]
     Active Substance: METOPROLOL
     Dates: end: 20220625
  9. ZOFRAN [Concomitant]
     Active Substance: ONDANSETRON HYDROCHLORIDE
     Dates: end: 20220625
  10. DIAZEPAM [Concomitant]
     Active Substance: DIAZEPAM
     Dates: end: 20220625
  11. SERTRALINE [Concomitant]
     Active Substance: SERTRALINE HYDROCHLORIDE
     Dates: end: 20220625
  12. LISINOPRIL [Concomitant]
     Active Substance: LISINOPRIL
     Dates: end: 20220625
  13. CALCIUM CARBONATE [Concomitant]
     Active Substance: CALCIUM CARBONATE
     Dates: end: 20220625
  14. ADVIL [Concomitant]
     Active Substance: IBUPROFEN
     Dates: end: 20220625
  15. EXCEDRIN EXTRA STRENGTH [Concomitant]
     Active Substance: ACETAMINOPHEN\ASPIRIN\CAFFEINE
     Dates: end: 20220625
  16. VITAMINS [Concomitant]
     Active Substance: VITAMINS
     Dates: end: 20220625
  17. TYLENOL [Concomitant]
     Active Substance: ACETAMINOPHEN
     Dates: end: 20220625
  18. HYDROCHLOROTHIAZIDE [Concomitant]
     Active Substance: HYDROCHLOROTHIAZIDE
     Dates: end: 20220625
  19. HYDROCORTISONE [Concomitant]
     Active Substance: HYDROCORTISONE
     Dates: end: 20220625
  20. ZOMETA [Concomitant]
     Active Substance: ZOLEDRONIC ACID
     Dates: end: 20220625
  21. GUAIFENESIN [Concomitant]
     Active Substance: GUAIFENESIN
     Dates: end: 20220625
  22. AMLODIPINE BESYLATE [Concomitant]
     Active Substance: AMLODIPINE BESYLATE
     Dates: end: 20220625
  23. LORAZEPAM [Concomitant]
     Active Substance: LORAZEPAM
     Dates: end: 20220625
  24. ATORVASTATIN CALCIUM [Concomitant]
     Active Substance: ATORVASTATIN CALCIUM
     Dates: end: 20220625
  25. KAPSPARGO [Concomitant]
     Active Substance: METOPROLOL SUCCINATE
     Dates: end: 20220625
  26. BUSPIRONE [Concomitant]
     Active Substance: BUSPIRONE HYDROCHLORIDE
     Dates: end: 20220625
  27. MIRTAZAPINE [Concomitant]
     Active Substance: MIRTAZAPINE
     Dates: end: 20220625

REACTIONS (1)
  - Haemorrhage [Unknown]

NARRATIVE: CASE EVENT DATE: 20220601
